FAERS Safety Report 25107763 (Version 3)
Quarter: 2025Q3

REPORT INFORMATION
  Report Type: Spontaneous
  Country: US (occurrence: US)
  Receive Date: 20250322
  Receipt Date: 20250826
  Transmission Date: 20251020
  Serious: No
  Sender: SANOFI AVENTIS
  Company Number: US-SA-2025SA078372

PATIENT
  Age: 13 Year
  Sex: Male

DRUGS (1)
  1. ALTUVIIIO [Suspect]
     Active Substance: EFANESOCTOCOG ALFA
     Indication: Haemorrhage prophylaxis
     Route: 042

REACTIONS (4)
  - Migraine [Unknown]
  - Peripheral swelling [Recovered/Resolved]
  - Haemorrhage [Recovered/Resolved]
  - Injury associated with device [Unknown]

NARRATIVE: CASE EVENT DATE: 20250301
